FAERS Safety Report 17943069 (Version 2)
Quarter: 2020Q3

REPORT INFORMATION
  Report Type: Spontaneous
  Country: GB (occurrence: GB)
  Receive Date: 20200625
  Receipt Date: 20200715
  Transmission Date: 20201103
  Serious: Yes (Hospitalization)
  Sender: FDA-Public Use
  Company Number: GB-MYLANLABS-2020M1059458

PATIENT
  Age: 50 Year
  Sex: Male
  Weight: 58 kg

DRUGS (4)
  1. CLOZARIL [Suspect]
     Active Substance: CLOZAPINE
     Dosage: 100 MILLIGRAM, AM
     Route: 048
     Dates: start: 20191219
  2. CLOZARIL [Suspect]
     Active Substance: CLOZAPINE
     Indication: SCHIZOPHRENIA
     Dosage: 100 MILLIGRAM, AM
     Route: 048
     Dates: start: 20021104, end: 20200610
  3. CLOZARIL [Suspect]
     Active Substance: CLOZAPINE
     Dosage: 300 MILLIGRAM, PM
     Route: 048
     Dates: start: 20191219
  4. CLOZARIL [Suspect]
     Active Substance: CLOZAPINE
     Dosage: 300 MILLIGRAM, PM
     Route: 048
     Dates: start: 20021104, end: 20200610

REACTIONS (9)
  - Anal incontinence [Unknown]
  - Weight decreased [Unknown]
  - Urinary incontinence [Unknown]
  - Dry skin [Unknown]
  - Confusional state [Unknown]
  - Intestinal obstruction [Recovered/Resolved]
  - Hospitalisation [Not Recovered/Not Resolved]
  - Wound [Unknown]
  - Blood pressure increased [Unknown]

NARRATIVE: CASE EVENT DATE: 20191126
